FAERS Safety Report 6010353-9 (Version None)
Quarter: 2008Q4

REPORT INFORMATION
  Report Type: 
  Country: None (occurrence: None)
  Receive Date: 20081218
  Receipt Date: 20081024
  Transmission Date: 20090506
  Serious: No
  Sender: FDA-Public Use
  Company Number: A0753532A

PATIENT
  Age: 69 Year
  Sex: Male

DRUGS (2)
  1. FLONASE [Suspect]
     Dosage: 2SPR PER DAY
     Route: 045
     Dates: start: 20081022
  2. DIOVAN HCT [Concomitant]

REACTIONS (7)
  - COLD SWEAT [None]
  - DIZZINESS [None]
  - DYSSTASIA [None]
  - EXPIRED DRUG ADMINISTERED [None]
  - HYPERHIDROSIS [None]
  - MALAISE [None]
  - NAUSEA [None]
